FAERS Safety Report 7204918-6 (Version None)
Quarter: 2010Q4

REPORT INFORMATION
  Report Type: 
  Country: None (occurrence: None)
  Receive Date: 20101230
  Receipt Date: 20101222
  Transmission Date: 20110411
  Serious: Yes (Hospitalization)
  Sender: FDA-Public Use
  Company Number: DK-PFIZER INC-DK-WYE-G06236410

PATIENT
  Age: 58 Year
  Sex: Male

DRUGS (4)
  1. EFFEXOR [Suspect]
     Dosage: UNK
     Route: 048
     Dates: end: 20090101
  2. SEROQUEL [Suspect]
     Dosage: UNK
     Route: 048
  3. LAMOTRIGINE [Suspect]
     Dosage: UNKNOWN
  4. ANTABUSE [Suspect]
     Dosage: UNKNOWN
     Route: 048

REACTIONS (2)
  - CONSTIPATION [None]
  - ILEUS PARALYTIC [None]
